FAERS Safety Report 20332562 (Version 1)
Quarter: 2022Q1

REPORT INFORMATION
  Report Type: Spontaneous
  Country: AU (occurrence: AU)
  Receive Date: 20220113
  Receipt Date: 20220113
  Transmission Date: 20220423
  Serious: Yes (Hospitalization, Other)
  Sender: FDA-Public Use
  Company Number: AU-ABBVIE-22K-008-4230286-00

PATIENT
  Age: 72 Year
  Sex: Female

DRUGS (6)
  1. VALPROATE [Suspect]
     Active Substance: VALPROIC ACID
     Indication: Abnormal behaviour
     Route: 065
  2. VALPROATE [Suspect]
     Active Substance: VALPROIC ACID
     Route: 065
  3. VALPROATE [Suspect]
     Active Substance: VALPROIC ACID
     Route: 065
  4. OMEPRAZOLE [Concomitant]
     Active Substance: OMEPRAZOLE
     Indication: Product used for unknown indication
  5. CARBIMAZOLE [Concomitant]
     Active Substance: CARBIMAZOLE
     Indication: Product used for unknown indication
  6. OLANZAPINE [Concomitant]
     Active Substance: OLANZAPINE
     Indication: Product used for unknown indication

REACTIONS (2)
  - Intentional product use issue [Recovered/Resolved]
  - Hyperammonaemic encephalopathy [Recovered/Resolved]
